FAERS Safety Report 6355855-0 (Version None)
Quarter: 2009Q3

REPORT INFORMATION
  Report Type: 
  Country: None (occurrence: None)
  Receive Date: 20090910
  Receipt Date: 20090910
  Transmission Date: 20100115
  Serious: Yes (Other)
  Sender: FDA-Public Use
  Company Number: None

PATIENT
  Age: 43 Year
  Sex: Female
  Weight: 64 kg

DRUGS (2)
  1. KEPPRA [Suspect]
     Indication: EPILEPSY
     Dosage: 2000 MG BID PO
     Route: 048
     Dates: start: 20080101, end: 20090101
  2. TRILEPTAL [Concomitant]

REACTIONS (3)
  - AVERSION [None]
  - NAUSEA [None]
  - VOMITING [None]
